FAERS Safety Report 7006510-5 (Version None)
Quarter: 2010Q3

REPORT INFORMATION
  Report Type: 
  Country: None (occurrence: None)
  Receive Date: 20100921
  Receipt Date: 20100921
  Transmission Date: 20110219
  Serious: No
  Sender: FDA-Public Use
  Company Number: None

PATIENT
  Age: 45 Year
  Sex: Female
  Weight: 72.6 kg

DRUGS (1)
  1. SODIUM CHLORIDE 0.9% [Suspect]
     Indication: BLOOD MAGNESIUM
     Dosage: 50 ML IV
     Route: 042
     Dates: start: 20100919, end: 20100919

REACTIONS (2)
  - ACCIDENTAL EXPOSURE [None]
  - DEVICE BREAKAGE [None]
